FAERS Safety Report 18637939 (Version 1)
Quarter: 2020Q4

REPORT INFORMATION
  Report Type: Spontaneous
  Country: GB (occurrence: US)
  Receive Date: 20201218
  Receipt Date: 20201218
  Transmission Date: 20210114
  Serious: Yes (Hospitalization)
  Sender: FDA-Public Use
  Company Number: US-ENDO PHARMACEUTICALS INC-2020-007785

PATIENT
  Age: 14 Year
  Sex: Female

DRUGS (1)
  1. OXYCODONE HYDROCHLORIDE. [Suspect]
     Active Substance: OXYCODONE HYDROCHLORIDE
     Indication: PRODUCT USED FOR UNKNOWN INDICATION
     Dosage: 75 MG, SINGLE (15 - 5 MG TABLETS)
     Route: 048

REACTIONS (3)
  - Toxic encephalopathy [Recovering/Resolving]
  - Movement disorder [Recovering/Resolving]
  - Intentional product misuse [Recovered/Resolved]
